FAERS Safety Report 11416462 (Version 10)
Quarter: 2018Q1

REPORT INFORMATION
  Report Type: Spontaneous
  Country: US (occurrence: US)
  Receive Date: 20150825
  Receipt Date: 20180321
  Transmission Date: 20180508
  Serious: Yes (Other)
  Sender: FDA-Public Use
  Company Number: US-PFIZER INC-2015279014

PATIENT
  Age: 58 Year
  Sex: Female

DRUGS (24)
  1. LYRICA [Suspect]
     Active Substance: PREGABALIN
     Dosage: UNK
     Dates: start: 20170807
  2. VITAMIN B-COMPLEX [Concomitant]
     Active Substance: DEXPANTHENOL\NIACINAMIDE\PYRIDOXINE HYDROCHLORIDE\RIBOFLAVIN 5^-PHOSPHATE SODIUM\THIAMINE HYDROCHLORIDE
     Dosage: UNK
     Dates: start: 20160605
  3. ALPHA LIPOIC ACID [Concomitant]
     Active Substance: .ALPHA.-LIPOIC ACID
     Dosage: UNK, ONCE A DAY
  4. DURAGESIC [Concomitant]
     Active Substance: FENTANYL
     Dosage: 1 PATCH (DF), EVERY 72 HOURS (25 MCG/HR)
     Route: 062
     Dates: start: 20170110
  5. FLONASE [Concomitant]
     Active Substance: FLUTICASONE PROPIONATE
     Dosage: 4 SPRAYS (DF), 2 SPRAYS (DF) INTO EACH NOSTRIL
     Route: 045
     Dates: start: 20170113
  6. PHENERGAN [Concomitant]
     Active Substance: PROMETHAZINE HYDROCHLORIDE
     Dosage: 25 MG, AS NEEDED
     Route: 048
     Dates: start: 20160913
  7. ZANAFLEX [Concomitant]
     Active Substance: TIZANIDINE HYDROCHLORIDE
     Dosage: 4 MG, THREE TIMES A DAY
     Dates: start: 20170113
  8. LYRICA [Suspect]
     Active Substance: PREGABALIN
     Indication: NEUROPATHY PERIPHERAL
     Dosage: 100 MG, THREE TIMES A DAY
     Route: 048
     Dates: start: 20170110
  9. NOVOLIN [Concomitant]
     Active Substance: INSULIN HUMAN
     Dosage: UNK, UNK (INSULIN ISOPHANE HUMAN: 70%/INSULIN REGULAR HUMAN: 30%)
     Dates: start: 20160520
  10. PRINIVIL [Concomitant]
     Active Substance: LISINOPRIL
     Dosage: 40 MG, DAILY
     Route: 048
     Dates: start: 20170113
  11. NEOMYCIN-BACITRACIN-POLYMYXIN [Concomitant]
     Dosage: UNK
     Dates: start: 20160803
  12. ZESTRIL [Concomitant]
     Active Substance: LISINOPRIL
     Dosage: 40 MG, DAILY
     Route: 048
     Dates: start: 20170113
  13. LANTUS [Concomitant]
     Active Substance: INSULIN GLARGINE
     Dosage: 40 IU, ONCE AT BEDTIME
  14. LYRICA [Suspect]
     Active Substance: PREGABALIN
     Indication: DIABETIC NEUROPATHY
     Dosage: UNK
  15. OMNICEF [Concomitant]
     Active Substance: CEFDINIR
     Dosage: 300 MG, TWICE A DAY
     Route: 048
     Dates: start: 20170201
  16. ALDACTONE [Concomitant]
     Active Substance: SPIRONOLACTONE
     Dosage: 25 MG, UNK
     Dates: start: 20160508
  17. ZANTAC [Concomitant]
     Active Substance: RANITIDINE HYDROCHLORIDE
     Dosage: 150 MG, TWICE A DAY
     Route: 048
     Dates: start: 20170113
  18. EFFEXOR [Concomitant]
     Active Substance: VENLAFAXINE HYDROCHLORIDE
     Dosage: 75 MG, DAILY
     Dates: start: 20160930
  19. CALCIUM WITH VITAMIN D [Concomitant]
     Active Substance: CALCIUM\VITAMIN D
     Dosage: UNK, ONCE A DAY
  20. AURALGAN [Concomitant]
     Indication: EAR PAIN
     Dosage: 3 DROPS (GTT) INTO THE LEFT EAR EVERY 2 (TWO HOURS)
     Dates: start: 20170202
  21. GLUCOTROL [Concomitant]
     Active Substance: GLIPIZIDE
     Dosage: 10 MG, DAILY
     Route: 048
     Dates: start: 20170113
  22. DESYREL [Concomitant]
     Active Substance: TRAZODONE HYDROCHLORIDE
     Dosage: 100 MG, ONCE EVERY NIGHT
     Route: 048
     Dates: start: 20161221
  23. DILAUDID [Concomitant]
     Active Substance: HYDROMORPHONE HYDROCHLORIDE
     Indication: PAIN
     Dosage: 4 MG, EVERY 4 HOURS
     Route: 048
     Dates: start: 20170110
  24. MAGNESIUM OXIDE -MG SUPPLEMENT [Concomitant]
     Dosage: 400 MG, UNK
     Dates: start: 20160711

REACTIONS (9)
  - Pain in extremity [Unknown]
  - Memory impairment [Unknown]
  - Fall [Unknown]
  - Dysarthria [Unknown]
  - Ear disorder [Unknown]
  - Burning sensation [Unknown]
  - Cerebrovascular accident [Unknown]
  - Wrist fracture [Unknown]
  - Gait disturbance [Unknown]

NARRATIVE: CASE EVENT DATE: 20170807
